FAERS Safety Report 7980938-9 (Version None)
Quarter: 2011Q4

REPORT INFORMATION
  Report Type: 
  Country: None (occurrence: None)
  Receive Date: 20111215
  Receipt Date: 20111208
  Transmission Date: 20120403
  Serious: Yes (Other)
  Sender: FDA-Public Use
  Company Number: US-BIOGENIDEC-2011BI026239

PATIENT
  Age: 65 Year
  Sex: Male

DRUGS (2)
  1. CHELATION THERAPY [Concomitant]
     Indication: MULTIPLE SCLEROSIS
  2. AVONEX [Suspect]
     Indication: MULTIPLE SCLEROSIS
     Route: 030
     Dates: start: 20090917

REACTIONS (1)
  - BASAL CELL CARCINOMA [None]
